FAERS Safety Report 6801734-1 (Version None)
Quarter: 2010Q2

REPORT INFORMATION
  Report Type: 
  Country: None (occurrence: None)
  Receive Date: 20100629
  Receipt Date: 20100621
  Transmission Date: 20101027
  Serious: Yes (Hospitalization)
  Sender: FDA-Public Use
  Company Number: US-ELI_LILLY_AND_COMPANY-US201006006438

PATIENT
  Sex: Female
  Weight: 70.295 kg

DRUGS (18)
  1. BYETTA [Suspect]
     Indication: TYPE 2 DIABETES MELLITUS
     Dosage: 5 U, 2/D
     Route: 058
     Dates: start: 20060101
  2. BYETTA [Suspect]
     Dosage: 10 U, 2/D
     Route: 058
  3. NORVASC [Concomitant]
     Dosage: UNK, DAILY (1/D)
     Route: 048
  4. AVAPRO [Concomitant]
     Dosage: UNK, DAILY (1/D)
     Route: 048
  5. ACTONEL [Concomitant]
     Dosage: UNK, DAILY (1/D)
     Route: 048
  6. LANTUS [Concomitant]
     Dosage: 45 U, DAILY (1/D)
     Route: 058
  7. LANTUS [Concomitant]
     Dosage: 15 U, DAILY (1/D)
     Route: 058
  8. CELEBREX [Concomitant]
     Dosage: UNK, AS NEEDED
     Route: 048
  9. HUMALOG [Concomitant]
     Dosage: UNK, AS NEEDED
     Route: 058
  10. HYDROCHLOROTHIAZIDE [Concomitant]
     Dosage: UNK, DAILY (1/D)
     Route: 048
  11. CAPADEX [Concomitant]
     Route: 048
  12. COUMADIN [Concomitant]
     Route: 048
  13. LIPITOR [Concomitant]
     Dosage: UNK, DAILY (1/D)
     Route: 048
  14. LEXAPRO [Concomitant]
     Dosage: UNK, DAILY (1/D)
     Route: 048
  15. WELLBUTRIN XL [Concomitant]
     Dosage: UNK, DAILY (1/D)
     Route: 048
  16. TOPAMAX [Concomitant]
     Dosage: UNK, DAILY (1/D)
     Route: 048
  17. SINGULAIR [Concomitant]
  18. ADVAIR DISKUS 100/50 [Concomitant]

REACTIONS (3)
  - ARTHRITIS [None]
  - CARTILAGE INJURY [None]
  - WEIGHT DECREASED [None]
